FAERS Safety Report 9072054 (Version 1)
Quarter: 2013Q1

REPORT INFORMATION
  Report Type: Spontaneous
  Country: US (occurrence: US)
  Receive Date: 20130206
  Receipt Date: 20130206
  Transmission Date: 20140127
  Serious: No
  Sender: FDA-Public Use
  Company Number: US-ALLERGAN-1215412US

PATIENT
  Age: 62 Year
  Sex: Female

DRUGS (3)
  1. RESTASIS? [Suspect]
     Indication: DRY EYE
     Dosage: 2 GTT, UNK
     Route: 047
     Dates: start: 2011, end: 201210
  2. MORPHINE PUMP [Concomitant]
     Indication: BACK PAIN
     Dosage: UNK
  3. FOURTEEN TO FIFTEEN MEDICATIONS NOS [Concomitant]
     Indication: PRODUCT USED FOR UNKNOWN INDICATION

REACTIONS (1)
  - Eye irritation [Recovered/Resolved]
